FAERS Safety Report 4725827-8 (Version None)
Quarter: 2005Q3

REPORT INFORMATION
  Report Type: 
  Country: None (occurrence: None)
  Receive Date: 20050727
  Receipt Date: 20050722
  Transmission Date: 20060218
  Serious: Yes (Hospitalization)
  Sender: FDA-Public Use
  Company Number: 2005CG01299

PATIENT
  Age: 15906 Day
  Sex: Female

DRUGS (3)
  1. MARCAINE [Suspect]
     Indication: SPINAL ANAESTHESIA
     Route: 037
     Dates: start: 20050718, end: 20050718
  2. EPHEDRINE [Concomitant]
     Dates: start: 20050718
  3. CEFUROXIME AXETIL [Concomitant]
     Dates: start: 20050718

REACTIONS (4)
  - BROWN-SEQUARD SYNDROME [None]
  - MYELOPATHY [None]
  - PARAPLEGIA [None]
  - POST PROCEDURAL COMPLICATION [None]
